FAERS Safety Report 24591619 (Version 2)
Quarter: 2024Q4

REPORT INFORMATION
  Report Type: Report from Study
  Country: US (occurrence: US)
  Receive Date: 20241108
  Receipt Date: 20241206
  Transmission Date: 20250114
  Serious: Yes (Hospitalization, Other)
  Sender: ALEXION PHARMACEUTICALS
  Company Number: US-AstraZeneca-202410USA025586US

PATIENT

DRUGS (4)
  1. BENRALIZUMAB [Suspect]
     Active Substance: BENRALIZUMAB
     Indication: Asthma
  2. BENRALIZUMAB [Suspect]
     Active Substance: BENRALIZUMAB
  3. BENRALIZUMAB [Suspect]
     Active Substance: BENRALIZUMAB
  4. BENRALIZUMAB [Suspect]
     Active Substance: BENRALIZUMAB

REACTIONS (3)
  - Hemiparesis [Unknown]
  - Back pain [Unknown]
  - Neck pain [Unknown]
